FAERS Safety Report 24145467 (Version 1)
Quarter: 2024Q3

REPORT INFORMATION
  Report Type: Spontaneous
  Country: FR (occurrence: FR)
  Receive Date: 20240729
  Receipt Date: 20240729
  Transmission Date: 20241016
  Serious: Yes (Hospitalization, Other)
  Sender: AUROBINDO
  Company Number: FR-AFSSAPS-PP2024000804

PATIENT
  Age: 78 Year
  Sex: Female

DRUGS (3)
  1. AMLODIPINE [Suspect]
     Active Substance: AMLODIPINE BESYLATE
     Indication: Hypertension
     Dosage: 10 MILLIGRAM, ONCE A DAY, 10 MG/J
     Route: 048
     Dates: start: 20230101, end: 20240701
  2. ALFUZOSIN [Suspect]
     Active Substance: ALFUZOSIN
     Indication: Benign prostatic hyperplasia
     Dosage: UNK UNK, ONCE A DAY, 1 CP PER DAY
     Route: 048
     Dates: start: 20230101, end: 20240701
  3. HALDOL [Suspect]
     Active Substance: HALOPERIDOL
     Indication: Hallucination
     Dosage: 1 MILLIGRAM, ONCE A DAY, 1 MG/J
     Route: 048
     Dates: start: 20240626, end: 20240702

REACTIONS (2)
  - Altered state of consciousness [Recovering/Resolving]
  - Hyponatraemia [Recovered/Resolved]

NARRATIVE: CASE EVENT DATE: 20240701
